FAERS Safety Report 9916271 (Version 2)
Quarter: 2014Q1

REPORT INFORMATION
  Report Type: Spontaneous
  Country: FI (occurrence: FI)
  Receive Date: 20140221
  Receipt Date: 20140311
  Transmission Date: 20141002
  Serious: Yes (Life-Threatening, Hospitalization, Other)
  Sender: FDA-Public Use
  Company Number: FI-JNJFOC-20140208302

PATIENT
  Sex: Male

DRUGS (3)
  1. RISPERDAL CONSTA [Suspect]
     Indication: CONFUSIONAL STATE
     Route: 030
  2. RISPERDAL CONSTA [Suspect]
     Indication: CONFUSIONAL STATE
     Route: 030
     Dates: start: 2012
  3. RISPERDAL [Concomitant]
     Route: 048

REACTIONS (16)
  - Pancreatitis [Not Recovered/Not Resolved]
  - Injection site inflammation [Unknown]
  - Diabetes mellitus [Unknown]
  - Pain [Not Recovered/Not Resolved]
  - Weight decreased [Unknown]
  - Inflammatory marker increased [Unknown]
  - Investigation [Unknown]
  - Malaise [Unknown]
  - Pyrexia [Unknown]
  - Anxiety [Recovered/Resolved]
  - Vomiting [Unknown]
  - Nightmare [Unknown]
  - Insomnia [Unknown]
  - Feeling abnormal [Unknown]
  - Decubitus ulcer [Unknown]
  - Dizziness [Unknown]
